FAERS Safety Report 8190613-6 (Version None)
Quarter: 2012Q1

REPORT INFORMATION
  Report Type: 
  Country: None (occurrence: None)
  Receive Date: 20120305
  Receipt Date: 20120221
  Transmission Date: 20120608
  Serious: Yes (Hospitalization, Other)
  Sender: FDA-Public Use
  Company Number: MCA-N-12-009

PATIENT
  Age: 55 Year
  Sex: Female
  Weight: 50 kg

DRUGS (2)
  1. AMLODIPINE [Suspect]
     Indication: SUICIDE ATTEMPT
     Dosage: 140 MG; X1
  2. OLMESARTAN MEDOXOMIL [Suspect]
     Indication: SUICIDE ATTEMPT
     Dosage: 180 MG; 1X

REACTIONS (8)
  - CIRCULATORY COLLAPSE [None]
  - ALTERED STATE OF CONSCIOUSNESS [None]
  - TOXICITY TO VARIOUS AGENTS [None]
  - HYPOTENSION [None]
  - URINE OUTPUT DECREASED [None]
  - METABOLIC ACIDOSIS [None]
  - RENAL IMPAIRMENT [None]
  - OVERDOSE [None]
